FAERS Safety Report 12706632 (Version 1)
Quarter: 2016Q3

REPORT INFORMATION
  Report Type: Report from Study
  Country: US (occurrence: US)
  Receive Date: 20160901
  Receipt Date: 20160901
  Transmission Date: 20161109
  Serious: Yes (Other)
  Sender: FDA-Public Use
  Company Number: US-JNJFOC-20160825263

PATIENT
  Age: 92 Year
  Sex: Male

DRUGS (9)
  1. IMBRUVICA [Suspect]
     Active Substance: IBRUTINIB
     Indication: CHRONIC LYMPHOCYTIC LEUKAEMIA
     Route: 048
     Dates: start: 20140605
  2. RITUXIMAB [Concomitant]
     Active Substance: RITUXIMAB
  3. ULTRAM [Concomitant]
     Active Substance: TRAMADOL HYDROCHLORIDE
  4. NORVASC [Concomitant]
     Active Substance: AMLODIPINE BESYLATE
  5. LISINOPRIL. [Concomitant]
     Active Substance: LISINOPRIL
  6. IMBRUVICA [Suspect]
     Active Substance: IBRUTINIB
     Indication: CHRONIC LYMPHOCYTIC LEUKAEMIA
     Route: 048
     Dates: start: 20160823
  7. COLACE [Concomitant]
     Active Substance: DOCUSATE SODIUM
  8. POTASSIUM [Concomitant]
     Active Substance: POTASSIUM
     Dates: end: 20160825
  9. GLUCOSAMINE [Concomitant]
     Active Substance: GLUCOSAMINE

REACTIONS (1)
  - Hip fracture [Unknown]

NARRATIVE: CASE EVENT DATE: 20160823
